FAERS Safety Report 9220267 (Version 1)
Quarter: 2013Q2

REPORT INFORMATION
  Report Type: Spontaneous
  Country: RU (occurrence: RU)
  Receive Date: 20130409
  Receipt Date: 20130409
  Transmission Date: 20140414
  Serious: Yes (Other)
  Sender: FDA-Public Use
  Company Number: RU-TEVA-391261ISR

PATIENT
  Age: 72 Year
  Sex: Female

DRUGS (1)
  1. TEVANAT [Suspect]

REACTIONS (2)
  - Asphyxia [Recovered/Resolved]
  - Bladder pain [Recovered/Resolved]
